FAERS Safety Report 15984172 (Version 4)
Quarter: 2024Q2

REPORT INFORMATION
  Report Type: Spontaneous
  Country: US (occurrence: US)
  Receive Date: 20190219
  Receipt Date: 20240603
  Transmission Date: 20240716
  Serious: Yes (Life-Threatening, Hospitalization, Disabling, Other)
  Sender: FDA-Public Use
  Company Number: US-MERCK-0504USA04403

PATIENT
  Sex: Female

DRUGS (3)
  1. VIOXX [Suspect]
     Active Substance: ROFECOXIB
     Indication: Procedural pain
     Dosage: 25 MG, QD
     Route: 048
     Dates: start: 1999, end: 2004
  2. VIOXX [Suspect]
     Active Substance: ROFECOXIB
     Indication: Rheumatoid arthritis
  3. VIOXX [Suspect]
     Active Substance: ROFECOXIB
     Indication: Arthralgia

REACTIONS (35)
  - Loss of consciousness [Not Recovered/Not Resolved]
  - Tremor [Not Recovered/Not Resolved]
  - Cerebrovascular accident [Not Recovered/Not Resolved]
  - Dizziness [Not Recovered/Not Resolved]
  - Seizure [Not Recovered/Not Resolved]
  - Migraine [Not Recovered/Not Resolved]
  - Gait inability [Unknown]
  - Paralysis [Unknown]
  - Neuropathy peripheral [Unknown]
  - Fibromyalgia [Unknown]
  - Hiccups [Unknown]
  - Ill-defined disorder [Unknown]
  - Ill-defined disorder [Not Recovered/Not Resolved]
  - Inflammation [Unknown]
  - Mood altered [Unknown]
  - Speech disorder [Unknown]
  - Surgery [Unknown]
  - Ulcer [Unknown]
  - Urinary tract disorder [Unknown]
  - Animal attack [Unknown]
  - Abdominal pain [Unknown]
  - Cough [Unknown]
  - Dyspnoea [Not Recovered/Not Resolved]
  - Ligament sprain [Unknown]
  - Gastrointestinal disorder [Unknown]
  - Anxiety [Unknown]
  - Confusional state [Unknown]
  - Constipation [Unknown]
  - Dyspepsia [Unknown]
  - Hypertension [Unknown]
  - Hypoaesthesia [Unknown]
  - Vision blurred [Unknown]
  - Chest pain [Not Recovered/Not Resolved]
  - Lung disorder [Unknown]
  - Palpitations [Unknown]

NARRATIVE: CASE EVENT DATE: 20030101
